FAERS Safety Report 4821160-4 (Version None)
Quarter: 2005Q4

REPORT INFORMATION
  Report Type: 
  Country: None (occurrence: None)
  Receive Date: 20051103
  Receipt Date: 20051024
  Transmission Date: 20060501
  Serious: Yes (Death)
  Sender: FDA-Public Use
  Company Number: 2005148160

PATIENT
  Sex: 0

DRUGS (3)
  1. SERTRALINE HCL [Suspect]
     Indication: ILL-DEFINED DISORDER
  2. BUPROPION HCL [Suspect]
     Indication: ILL-DEFINED DISORDER
  3. OXCARBAZEPINE [Suspect]
     Indication: ILL-DEFINED DISORDER

REACTIONS (2)
  - COMPLETED SUICIDE [None]
  - DRUG TOXICITY [None]
